FAERS Safety Report 21001553 (Version 1)
Quarter: 2022Q2

REPORT INFORMATION
  Report Type: Spontaneous
  Country: US (occurrence: US)
  Receive Date: 20220624
  Receipt Date: 20220624
  Transmission Date: 20220721
  Serious: No
  Sender: FDA-Public Use
  Company Number: US-BioHaven Pharmaceuticals-2022BHV000912

PATIENT
  Age: 68 Year
  Sex: Female
  Weight: 60.836 kg

DRUGS (4)
  1. NURTEC ODT [Suspect]
     Active Substance: RIMEGEPANT SULFATE
     Indication: Migraine prophylaxis
     Dosage: ONE TABLET, TAB/CAP MARKING: WHITE?PATIENT TOOK IT ON 14/MAR/2022,19/MAR/2022, 21/MAR/2022, 23/MAR/2
     Route: 048
     Dates: start: 20220314
  2. NURTEC ODT [Suspect]
     Active Substance: RIMEGEPANT SULFATE
     Dosage: PATIENT TAKES IT AN HOUR OR SO AFTER THE ONSET OF THE MIGRAINE.
     Route: 048
     Dates: start: 20220314
  3. MAXALT [Concomitant]
     Active Substance: RIZATRIPTAN BENZOATE
     Indication: Migraine
     Dosage: 4 PER MONTH
     Route: 065
  4. IMITREX [Concomitant]
     Active Substance: SUMATRIPTAN SUCCINATE
     Indication: Migraine
     Dosage: 4 PER MONTH
     Route: 065

REACTIONS (4)
  - Drug ineffective [Not Recovered/Not Resolved]
  - Feeling abnormal [Not Recovered/Not Resolved]
  - Disturbance in attention [Not Recovered/Not Resolved]
  - Cognitive disorder [Not Recovered/Not Resolved]
